FAERS Safety Report 5826354-7 (Version None)
Quarter: 2008Q3

REPORT INFORMATION
  Report Type: 
  Country: None (occurrence: None)
  Receive Date: 20080729
  Receipt Date: 20080723
  Transmission Date: 20090109
  Serious: Yes (Death, Hospitalization)
  Sender: FDA-Public Use
  Company Number: GB-BOEHRINGER INGELHEIM GMBH, GERMANY-2006-UK-04740UK

PATIENT
  Age: 77 Year
  Sex: Male

DRUGS (3)
  1. ORAMORPH SR [Suspect]
     Indication: PAIN
     Route: 048
     Dates: start: 20051001
  2. LYRICA [Suspect]
     Indication: NEURALGIA
     Dates: start: 20051001
  3. DICLOFENAC SODIUM [Concomitant]
     Indication: PAIN
     Route: 048

REACTIONS (3)
  - CONFUSIONAL STATE [None]
  - DRUG INTERACTION [None]
  - TRANSIENT ISCHAEMIC ATTACK [None]
